FAERS Safety Report 8861717 (Version 1)
Quarter: 2012Q4

REPORT INFORMATION
  Report Type: 
  Country: US (occurrence: US)
  Receive Date: 20121025
  Receipt Date: 20121025
  Transmission Date: 20130627
  Serious: No
  Sender: FDA-Public Use
  Company Number: US-AMGEN-USASP2012020256

PATIENT
  Age: 60 Year
  Sex: Female
  Weight: 62.13 kg

DRUGS (7)
  1. ENBREL [Suspect]
     Indication: RHEUMATOID ARTHRITIS
     Dosage: 25 mg, 2 times/wk
     Route: 058
  2. HYDROCHLOROTHIAZIDE W/TRIAMTERENE [Concomitant]
  3. METOPROLOL TARTRATE [Concomitant]
     Dosage: 100 mg, UNK
     Route: 048
  4. FOSAMAX [Concomitant]
     Dosage: 10 mg, UNK
     Route: 048
  5. CALCIUM [Concomitant]
     Route: 048
  6. VITAMIN D3 [Concomitant]
     Dosage: 5000 IU, UNK
     Route: 048
  7. FOLIC ACID [Concomitant]
     Route: 048

REACTIONS (1)
  - Upper respiratory tract infection [Recovered/Resolved]
